FAERS Safety Report 8262750-9 (Version None)
Quarter: 2012Q1

REPORT INFORMATION
  Report Type: 
  Country: None (occurrence: None)
  Receive Date: 20120327
  Receipt Date: 20090113
  Transmission Date: 20120608
  Serious: Yes (Hospitalization)
  Sender: FDA-Public Use
  Company Number: PHEH2008US11065

PATIENT
  Age: 83 Year
  Sex: Female
  Weight: 48.3 kg

DRUGS (11)
  1. GLEEVEC [Suspect]
     Indication: CHRONIC MYELOID LEUKAEMIA
     Dosage: 400 MG, QD, ORAL
     Route: 048
     Dates: start: 20081117, end: 20081124
  2. AMBIEN [Concomitant]
  3. PLAVIX [Concomitant]
  4. SUDAFED 12 HOUR [Concomitant]
  5. HYDROXYUREA [Suspect]
     Indication: CHRONIC MYELOID LEUKAEMIA
     Dosage: 1000 MG, QD, ORAL ; 500 MG, QD, ORAL
     Route: 048
     Dates: start: 20081001, end: 20081106
  6. HYDROXYUREA [Suspect]
     Indication: CHRONIC MYELOID LEUKAEMIA
     Dosage: 1000 MG, QD, ORAL ; 500 MG, QD, ORAL
     Route: 048
     Dates: start: 20081106, end: 20081124
  7. PANCREATIC ENZYMES (PANCRELIPASE) [Concomitant]
  8. CYPROHEPTADINE HCL [Concomitant]
  9. LEVOXYL [Concomitant]
  10. TRAMADOL HYDROCHLORIDE [Concomitant]
  11. CLOBETASOL PROPIONATE [Concomitant]

REACTIONS (10)
  - HAEMOGLOBIN DECREASED [None]
  - PLATELET TRANSFUSION [None]
  - WHITE BLOOD CELL COUNT DECREASED [None]
  - HAEMATOCRIT DECREASED [None]
  - PACKED RED BLOOD CELL TRANSFUSION [None]
  - PANCYTOPENIA [None]
  - ANAEMIA [None]
  - NEUTROPHIL COUNT DECREASED [None]
  - NAUSEA [None]
  - THROMBOCYTOPENIA [None]
